FAERS Safety Report 14963954 (Version 1)
Quarter: 2018Q2

REPORT INFORMATION
  Report Type: Spontaneous
  Country: JP (occurrence: JP)
  Receive Date: 20180601
  Receipt Date: 20180601
  Transmission Date: 20180711
  Serious: Yes (Other)
  Sender: FDA-Public Use
  Company Number: JP-PFIZER INC-2018215489

PATIENT
  Sex: Female

DRUGS (1)
  1. LYRICA [Suspect]
     Active Substance: PREGABALIN
     Indication: HYPOAESTHESIA
     Dosage: 25 MG, 2X/DAY (IN THE MORNING AND THE EVENING)
     Dates: start: 20180501, end: 201805

REACTIONS (4)
  - Fall [Unknown]
  - Rash erythematous [Unknown]
  - Oedema peripheral [Unknown]
  - Gait disturbance [Unknown]
